FAERS Safety Report 12265112 (Version 1)
Quarter: 2016Q2

REPORT INFORMATION
  Report Type: Spontaneous
  Country: US (occurrence: US)
  Receive Date: 20160413
  Receipt Date: 20160413
  Transmission Date: 20160815
  Serious: Yes (Other)
  Sender: FDA-Public Use
  Company Number: US-GLAXOSMITHKLINE-US2016049713

PATIENT
  Sex: Female

DRUGS (4)
  1. ADVAIR DISKUS [Suspect]
     Active Substance: FLUTICASONE PROPIONATE\SALMETEROL XINAFOATE
     Dosage: 500/50 UG   1 PUFF(S), BID
     Route: 055
  2. ADVAIR DISKUS [Suspect]
     Active Substance: FLUTICASONE PROPIONATE\SALMETEROL XINAFOATE
     Indication: CHRONIC OBSTRUCTIVE PULMONARY DISEASE
     Dosage: 250/50 UG
     Route: 055
  3. TYLENOL [Concomitant]
     Active Substance: ACETAMINOPHEN
  4. ALBUTEROL. [Concomitant]
     Active Substance: ALBUTEROL

REACTIONS (6)
  - Condition aggravated [Unknown]
  - Drug dose omission [Unknown]
  - Intentional product misuse [Unknown]
  - Drug ineffective [Unknown]
  - Retinitis pigmentosa [Not Recovered/Not Resolved]
  - Dyspnoea [Unknown]

NARRATIVE: CASE EVENT DATE: 2015
